FAERS Safety Report 9484183 (Version 1)
Quarter: 2013Q3

REPORT INFORMATION
  Report Type: Spontaneous
  Country: US (occurrence: US)
  Receive Date: 20130828
  Receipt Date: 20130828
  Transmission Date: 20140515
  Serious: Yes (Death, Other)
  Sender: FDA-Public Use
  Company Number: US-AMGEN-KDL388399

PATIENT
  Sex: Male

DRUGS (2)
  1. ENBREL [Suspect]
     Indication: CROHN^S DISEASE
     Dosage: UNK UNK, UNK
     Route: 065
  2. ENBREL [Suspect]
     Indication: PSORIASIS

REACTIONS (3)
  - Death [Fatal]
  - Renal failure [Unknown]
  - Respiratory failure [Unknown]
